FAERS Safety Report 10005416 (Version 1)
Quarter: 2014Q1

REPORT INFORMATION
  Report Type: Spontaneous
  Country: US (occurrence: US)
  Receive Date: 20140313
  Receipt Date: 20140313
  Transmission Date: 20141002
  Serious: No
  Sender: FDA-Public Use
  Company Number: US-BIOGENIDEC-2014BI022664

PATIENT
  Age: 40 Year
  Sex: Female

DRUGS (10)
  1. PROZAC [Concomitant]
  2. SAVELLA [Concomitant]
  3. TYLENOL [Concomitant]
  4. ZYPREXA [Concomitant]
  5. AVONEX [Suspect]
     Indication: MULTIPLE SCLEROSIS
     Route: 030
  6. ASPIRIN LOW DOSE [Concomitant]
  7. BUSPIRONE HCL [Concomitant]
  8. IBUPROFEN [Concomitant]
  9. INDERAL LA [Concomitant]
  10. PROVIL [Concomitant]

REACTIONS (2)
  - Adverse event [Unknown]
  - Influenza like illness [Unknown]
